FAERS Safety Report 22125045 (Version 1)
Quarter: 2023Q1

REPORT INFORMATION
  Report Type: Spontaneous
  Country: IE (occurrence: IE)
  Receive Date: 20230322
  Receipt Date: 20230322
  Transmission Date: 20230418
  Serious: Yes (Hospitalization)
  Sender: FDA-Public Use
  Company Number: None

PATIENT
  Age: 42 Year
  Sex: Female
  Weight: 59 kg

DRUGS (5)
  1. ENTYVIO [Suspect]
     Active Substance: VEDOLIZUMAB
     Indication: Colitis ulcerative
     Dosage: 300 MILLIGRAM
     Route: 042
     Dates: start: 20230228
  2. Salofalk [Concomitant]
     Indication: Colitis
     Dosage: 1 GRAM, QD
  3. LORAT [Concomitant]
     Indication: Premedication
     Dosage: 10 MILLIGRAM
     Dates: start: 20230228
  4. ASACOL [Concomitant]
     Active Substance: MESALAMINE
     Indication: Colitis
     Dosage: 800 MILLIGRAM, Q8HR
  5. HYDROCORTISONE [Concomitant]
     Active Substance: HYDROCORTISONE
     Indication: Premedication
     Dosage: 100 MILLIGRAM
     Dates: start: 20230228

REACTIONS (1)
  - Urticaria [Recovered/Resolved]

NARRATIVE: CASE EVENT DATE: 20230228
